FAERS Safety Report 5174849-4 (Version None)
Quarter: 2006Q4

REPORT INFORMATION
  Report Type: 
  Country: None (occurrence: None)
  Receive Date: 20061214
  Receipt Date: 20060603
  Transmission Date: 20070319
  Serious: No
  Sender: FDA-Public Use
  Company Number: US-AMGEN-KDL181812

PATIENT
  Sex: Female

DRUGS (1)
  1. ENBREL [Suspect]
     Indication: PSORIASIS
     Route: 058
     Dates: start: 20050401

REACTIONS (7)
  - BLOOD URINE PRESENT [None]
  - CONDITION AGGRAVATED [None]
  - CONTUSION [None]
  - INJECTION SITE BRUISING [None]
  - PSORIASIS [None]
  - RECTAL HAEMORRHAGE [None]
  - URINARY TRACT INFECTION [None]
